FAERS Safety Report 10255456 (Version 1)
Quarter: 2014Q2

REPORT INFORMATION
  Report Type: Spontaneous
  Country: BR (occurrence: BR)
  Receive Date: 20140624
  Receipt Date: 20140624
  Transmission Date: 20141212
  Serious: Yes (Hospitalization)
  Sender: FDA-Public Use
  Company Number: PHHY2014BR075336

PATIENT
  Age: 26 Day
  Sex: Male

DRUGS (2)
  1. PARACETAMOL [Suspect]
     Dosage: 10 MG/KG, EVERY 4 HOURS
     Route: 048
  2. PARACETAMOL [Suspect]
     Dosage: 180 MG/KG, (TOTAL DOSE)

REACTIONS (10)
  - Acute hepatic failure [Unknown]
  - Hepatotoxicity [Unknown]
  - Intestinal haemorrhage [Unknown]
  - Shock [Unknown]
  - Hepatomegaly [Unknown]
  - Coagulopathy [Unknown]
  - Metabolic acidosis [Unknown]
  - Hypoglycaemia [Unknown]
  - Transaminases increased [Unknown]
  - Hyperbilirubinaemia [Unknown]
